FAERS Safety Report 7201536-0 (Version None)
Quarter: 2010Q4

REPORT INFORMATION
  Report Type: 
  Country: None (occurrence: None)
  Receive Date: 20101229
  Receipt Date: 20101221
  Transmission Date: 20110411
  Serious: Yes (Hospitalization)
  Sender: FDA-Public Use
  Company Number: GB-NAPPMUNDI-GBR-2010-0007525

PATIENT
  Sex: Female

DRUGS (9)
  1. MORPHINE SULFATE [Suspect]
     Indication: PRODUCT USED FOR UNKNOWN INDICATION
     Route: 048
  2. DALTEPARIN SODIUM [Suspect]
     Dosage: UNK
     Dates: start: 20101123
  3. DALTEPARIN SODIUM [Suspect]
     Dosage: UNK
     Dates: start: 20101201
  4. ATORVASTATIN [Concomitant]
     Dosage: 40 MG, DAILY
     Route: 048
  5. CITALOPRAM [Concomitant]
     Dosage: 20 MG, DAILY
     Route: 048
  6. INSULIN ASPART [Concomitant]
     Dosage: 10 IU, UNK
     Route: 058
  7. INSULIN GLARGINE [Concomitant]
     Dosage: 35 IU, UNK
     Route: 058
  8. METFORMIN [Concomitant]
     Dosage: 2 G, DAILY
     Route: 048
  9. OMEPRAZOLE [Concomitant]
     Dosage: 20 MG, DAILY
     Route: 048

REACTIONS (6)
  - ATRIAL FIBRILLATION [None]
  - CONSTIPATION [None]
  - COUGH [None]
  - DYSPNOEA [None]
  - LOWER RESPIRATORY TRACT INFECTION [None]
  - VOMITING [None]
